FAERS Safety Report 10213159 (Version 1)
Quarter: 2014Q2

REPORT INFORMATION
  Report Type: Report from Study
  Country: FR (occurrence: FR)
  Receive Date: 20140603
  Receipt Date: 20140603
  Transmission Date: 20141212
  Serious: Yes (Hospitalization)
  Sender: FDA-Public Use
  Company Number: FR-BIOGENIDEC-2014BI050835

PATIENT
  Age: 50 Year
  Sex: Female
  Weight: 100 kg

DRUGS (20)
  1. TYSABRI [Suspect]
     Indication: MULTIPLE SCLEROSIS
     Route: 042
     Dates: start: 20090512
  2. LYRICA [Concomitant]
     Indication: ANALGESIC THERAPY
     Route: 048
  3. LYRICA [Concomitant]
     Indication: ANALGESIC THERAPY
     Route: 048
  4. LIORESAL [Concomitant]
     Indication: MUSCLE RELAXANT THERAPY
     Route: 048
  5. VESICARE [Concomitant]
     Indication: BLADDER DISORDER
     Route: 048
     Dates: start: 201204
  6. VESICARE [Concomitant]
     Indication: BLADDER DISORDER
     Route: 048
  7. FAMPYRA [Concomitant]
     Indication: GAIT DISTURBANCE
     Route: 048
     Dates: start: 201304
  8. OMEPRAZOLE [Concomitant]
     Indication: ANTACID THERAPY
     Dates: start: 201306
  9. TRAMADOL [Concomitant]
     Indication: PAIN
     Dates: start: 201006
  10. INEXIUM [Concomitant]
  11. BACLOFENE [Concomitant]
     Route: 048
  12. GLUCIDION [Concomitant]
     Route: 042
  13. ZINC [Concomitant]
     Route: 042
  14. SELENIUM [Concomitant]
     Route: 042
  15. CALCIUM [Concomitant]
     Route: 042
  16. MAGNESIUM [Concomitant]
     Route: 042
  17. EUPANTOL [Concomitant]
     Route: 048
  18. TRIMEBUTINE [Concomitant]
     Route: 048
  19. PRIMPERAN [Concomitant]
     Route: 048
  20. LOVENOX [Concomitant]
     Route: 058

REACTIONS (3)
  - Pancreatitis acute [Recovered/Resolved]
  - Cholecystitis [Recovered/Resolved]
  - Cholelithiasis [Recovered/Resolved]
